FAERS Safety Report 7377281-8 (Version None)
Quarter: 2011Q1

REPORT INFORMATION
  Report Type: 
  Country: None (occurrence: None)
  Receive Date: 20110328
  Receipt Date: 20110316
  Transmission Date: 20110831
  Serious: Yes (Other)
  Sender: FDA-Public Use
  Company Number: US-JNJFOC-20101105248

PATIENT
  Sex: Female
  Weight: 90.72 kg

DRUGS (5)
  1. DURAGESIC-50 [Suspect]
     Indication: ARTHRALGIA
     Route: 062
  2. LORCET-HD [Concomitant]
     Indication: PAIN
     Route: 048
  3. DURAGESIC-50 [Suspect]
     Route: 062
  4. DURAGESIC-50 [Suspect]
     Indication: PAIN
     Dosage: NDC#50458-0094-05
     Route: 062
  5. XANAX [Concomitant]

REACTIONS (14)
  - MEMORY IMPAIRMENT [None]
  - LOWER LIMB FRACTURE [None]
  - CONCUSSION [None]
  - PRODUCT ADHESION ISSUE [None]
  - INADEQUATE ANALGESIA [None]
  - MUSCULAR WEAKNESS [None]
  - FALL [None]
  - EYELID TUMOUR [None]
  - OCULAR NEOPLASM [None]
  - INCORRECT DOSE ADMINISTERED [None]
  - HIP FRACTURE [None]
  - TREATMENT NONCOMPLIANCE [None]
  - HEAD INJURY [None]
  - LOSS OF CONSCIOUSNESS [None]
